FAERS Safety Report 5556759-3 (Version None)
Quarter: 2007Q4

REPORT INFORMATION
  Report Type: 
  Country: None (occurrence: None)
  Receive Date: 20071130
  Receipt Date: 20070723
  Transmission Date: 20080405
  Serious: No
  Sender: FDA-Public Use
  Company Number: 2006PV025071

PATIENT
  Age: 52 Year
  Sex: Female

DRUGS (2)
  1. EXENATIDE(EXENATIDE) PEN,DISPOSABLE [Suspect]
     Indication: DRUG USE FOR UNKNOWN INDICATION
     Dosage: 10 UG, SUBCUTANEOUS; 10 UG, 2/D, SUBCUTANEOUS
     Route: 058
  2. EXENATIDE(EXENATIDE) PEN,DISPOSABLE [Suspect]

REACTIONS (3)
  - BLOOD GLUCOSE INCREASED [None]
  - DRUG EFFECT DECREASED [None]
  - INCORRECT DOSE ADMINISTERED [None]
